FAERS Safety Report 5084293-6 (Version None)
Quarter: 2006Q3

REPORT INFORMATION
  Report Type: 
  Country: None (occurrence: None)
  Receive Date: 20060821
  Receipt Date: 20060504
  Transmission Date: 20061208
  Serious: Yes (Hospitalization)
  Sender: FDA-Public Use
  Company Number: FR-AMGEN-UK178488

PATIENT
  Age: 84 Year
  Sex: Male

DRUGS (6)
  1. ARANESP [Suspect]
     Indication: ANAEMIA OF MALIGNANT DISEASE
     Route: 042
     Dates: end: 20060222
  2. LASILIX [Suspect]
     Route: 048
     Dates: end: 20060222
  3. TARDYFERON [Suspect]
     Route: 048
     Dates: end: 20060222
  4. DIFFU K [Suspect]
     Route: 048
     Dates: end: 20060222
  5. ALLOPURINOL [Suspect]
     Route: 048
     Dates: start: 20051231, end: 20060222
  6. NEBIVOLOL HCL [Suspect]
     Route: 048
     Dates: end: 20060222

REACTIONS (6)
  - EOSINOPHILIA [None]
  - PRURITUS [None]
  - RASH MACULO-PAPULAR [None]
  - RENAL FAILURE [None]
  - SKIN EXFOLIATION [None]
  - TOXIC SKIN ERUPTION [None]
